FAERS Safety Report 23964154 (Version 1)
Quarter: 2024Q2

REPORT INFORMATION
  Report Type: Spontaneous
  Country: US (occurrence: None)
  Receive Date: 20240611
  Receipt Date: 20240611
  Transmission Date: 20240716
  Serious: Yes (Hospitalization)
  Sender: FDA-Public Use
  Company Number: None

PATIENT
  Age: 68 Year
  Sex: Male
  Weight: 99.8 kg

DRUGS (2)
  1. PANZYGA [Suspect]
     Active Substance: HUMAN IMMUNOGLOBULIN G
     Indication: Multifocal motor neuropathy
     Dosage: 50GM IV X 2 DAYS EVERY 3 WEEKS INTRAVENOUS?
     Route: 042
     Dates: start: 20231116, end: 20240429
  2. PANZYGA [Suspect]
     Active Substance: HUMAN IMMUNOGLOBULIN G
     Indication: Multifocal motor neuropathy
     Dosage: OTHER FREQUENCY : 2 DAYS EVRY 3 WKS;?
     Route: 042
     Dates: start: 20231116, end: 20240429

REACTIONS (1)
  - Thrombosis [None]

NARRATIVE: CASE EVENT DATE: 20240421
